FAERS Safety Report 7142166-9 (Version None)
Quarter: 2010Q4

REPORT INFORMATION
  Report Type: 
  Country: None (occurrence: None)
  Receive Date: 20101207
  Receipt Date: 20101125
  Transmission Date: 20110411
  Serious: Yes (Other)
  Sender: FDA-Public Use
  Company Number: BR-GENENTECH-310473

PATIENT
  Sex: Female
  Weight: 68 kg

DRUGS (2)
  1. RITUXIMAB [Suspect]
     Indication: RHEUMATOID ARTHRITIS
     Dosage: UNK
     Route: 065
     Dates: start: 20100527, end: 20100611
  2. CORTISONE [Concomitant]
     Indication: PRODUCT USED FOR UNKNOWN INDICATION
     Dosage: 5 MG, UNK

REACTIONS (5)
  - ARTHROPATHY [None]
  - ASTHENIA [None]
  - IMPAIRED HEALING [None]
  - KNEE DEFORMITY [None]
  - VERTIGO [None]
